FAERS Safety Report 7952918-0 (Version None)
Quarter: 2011Q4

REPORT INFORMATION
  Report Type: 
  Country: None (occurrence: None)
  Receive Date: 20111201
  Receipt Date: 20111129
  Transmission Date: 20120403
  Serious: Yes (Life-Threatening, Hospitalization, Other)
  Sender: FDA-Public Use
  Company Number: CA-ABBOTT-11P-028-0730552-00

PATIENT
  Sex: Female
  Weight: 68.1 kg

DRUGS (4)
  1. UNKNOWN MEDICATION [Concomitant]
     Indication: THYROID DISORDER
     Route: 048
     Dates: start: 20010101
  2. LIPIDIL [Concomitant]
     Indication: BLOOD CHOLESTEROL INCREASED
     Route: 048
     Dates: start: 20030101
  3. UNKNOWN MEDICATION [Concomitant]
     Indication: HYPERTENSION
     Route: 048
     Dates: start: 20010101
  4. HUMIRA [Suspect]
     Indication: RHEUMATOID ARTHRITIS
     Route: 058
     Dates: start: 20100409, end: 20100723

REACTIONS (6)
  - PNEUMONIA [None]
  - LUNG DISORDER [None]
  - RESPIRATORY FAILURE [None]
  - PNEUMONIA LEGIONELLA [None]
  - APPARENT DEATH [None]
  - PULMONARY EMBOLISM [None]
